FAERS Safety Report 12402073 (Version 5)
Quarter: 2018Q4

REPORT INFORMATION
  Report Type: Spontaneous
  Country: US (occurrence: US)
  Receive Date: 20160525
  Receipt Date: 20181221
  Transmission Date: 20190204
  Serious: No
  Sender: FDA-Public Use
  Company Number: US-SA-2016SA000734

PATIENT
  Age: 67 Year
  Sex: Female
  Weight: 250 kg

DRUGS (3)
  1. LANTUS SOLOSTAR [Suspect]
     Active Substance: INSULIN GLARGINE
     Dosage: 45 U, QD
     Route: 065
  2. LANTUS SOLOSTAR [Suspect]
     Active Substance: INSULIN GLARGINE
     Indication: TYPE 2 DIABETES MELLITUS
     Dosage: 65 DF,BID
     Route: 065
     Dates: start: 2013
  3. NOVOLOG [Concomitant]
     Active Substance: INSULIN ASPART
     Dosage: UNKNOWN

REACTIONS (3)
  - Cough [Not Recovered/Not Resolved]
  - Asthma [Not Recovered/Not Resolved]
  - Product use issue [Unknown]
